FAERS Safety Report 6964076-X (Version None)
Quarter: 2010Q3

REPORT INFORMATION
  Report Type: 
  Country: None (occurrence: None)
  Receive Date: 20100831
  Receipt Date: 20100819
  Transmission Date: 20110219
  Serious: Yes (Disabling, Other)
  Sender: FDA-Public Use
  Company Number: CH-1182371

PATIENT
  Age: 45 Year
  Sex: Female

DRUGS (1)
  1. TRAVATAN [Suspect]
     Indication: GLAUCOMA
     Dosage: 1 GTT QD OU, OPHTHALMIC
     Route: 047
     Dates: start: 20060201

REACTIONS (3)
  - CORNEAL DYSTROPHY [None]
  - DISEASE PROGRESSION [None]
  - GLAUCOMA [None]
